FAERS Safety Report 8096094-5 (Version None)
Quarter: 2012Q1

REPORT INFORMATION
  Report Type: 
  Country: None (occurrence: None)
  Receive Date: 20120131
  Receipt Date: 20120125
  Transmission Date: 20120608
  Serious: Yes (Hospitalization)
  Sender: FDA-Public Use
  Company Number: US-GLAXOSMITHKLINE-A0877362A

PATIENT
  Age: 77 Year
  Sex: Male
  Weight: 98.2 kg

DRUGS (6)
  1. AVANDIA [Suspect]
     Indication: DIABETES MELLITUS
     Dosage: 2MG PER DAY
     Route: 048
     Dates: start: 20070508, end: 20100219
  2. DILTIAZEM HCL [Concomitant]
  3. QUINAPRIL [Concomitant]
  4. CELEBREX [Concomitant]
  5. CLONIDINE [Concomitant]
  6. HYZAAR [Concomitant]

REACTIONS (1)
  - ISCHAEMIC STROKE [None]
